FAERS Safety Report 12988143 (Version 2)
Quarter: 2016Q4

REPORT INFORMATION
  Report Type: Spontaneous
  Country: IT (occurrence: IT)
  Receive Date: 20161130
  Receipt Date: 20161207
  Transmission Date: 20170207
  Serious: Yes (Other)
  Sender: FDA-Public Use
  Company Number: IT-ABBVIE-16P-083-1793685-00

PATIENT
  Sex: Male

DRUGS (3)
  1. REYATAZ [Suspect]
     Active Substance: ATAZANAVIR SULFATE
     Indication: HIV INFECTION
     Route: 065
     Dates: start: 20081016
  2. EFAVIRENZ [Suspect]
     Active Substance: EFAVIRENZ
     Indication: HIV INFECTION
     Route: 065
     Dates: start: 20121106
  3. NORVIR [Suspect]
     Active Substance: RITONAVIR
     Indication: HIV INFECTION
     Route: 065
     Dates: start: 20081016

REACTIONS (9)
  - Renal failure [Unknown]
  - Transaminases increased [Unknown]
  - Ophthalmic herpes simplex [Unknown]
  - Cytomegalovirus infection [Unknown]
  - Hepatocellular carcinoma [Unknown]
  - Hypertension [Unknown]
  - Neuropsychiatric symptoms [Unknown]
  - Hepatitis C [Unknown]
  - Herpes zoster [Unknown]
